FAERS Safety Report 14526172 (Version 1)
Quarter: 2018Q1

REPORT INFORMATION
  Report Type: Spontaneous
  Country: GB (occurrence: GB)
  Receive Date: 20180213
  Receipt Date: 20180213
  Transmission Date: 20180509
  Serious: Yes (Hospitalization, Other)
  Sender: FDA-Public Use
  Company Number: GB-HERITAGE PHARMACEUTICALS-2018HTG00019

PATIENT
  Age: 52 Year
  Sex: Male

DRUGS (9)
  1. G.APRACLONIDINE [Concomitant]
     Dosage: 1%
     Route: 047
  2. ACETAZOLAMIDE. [Suspect]
     Active Substance: ACETAZOLAMIDE
     Indication: ANGLE CLOSURE GLAUCOMA
     Dosage: 250 MG, UNK
     Route: 048
  3. G.APRACLONIDINE [Concomitant]
     Dosage: 1%, 2X/DAY (BD)
     Route: 047
  4. G.APRACLONIDINE [Concomitant]
     Dosage: 1%, 2X/DAY (BD)
     Route: 047
  5. LATANOPROST. [Concomitant]
     Active Substance: LATANOPROST
     Indication: ANGLE CLOSURE GLAUCOMA
     Route: 065
  6. ACETAZOLAMIDE. [Suspect]
     Active Substance: ACETAZOLAMIDE
     Dosage: 125 MG, 3X/DAY (TDS)
     Route: 048
  7. DEXAMETHASONE. [Concomitant]
     Active Substance: DEXAMETHASONE
     Dosage: UNK, 6X/DAY
     Route: 065
  8. DEXAMETHASONE. [Concomitant]
     Active Substance: DEXAMETHASONE
     Dosage: UNK, 6X/DAY
     Route: 065
  9. ACETAZOLAMIDE. [Suspect]
     Active Substance: ACETAZOLAMIDE
     Dosage: 125 MG, 3X/DAY (TDS)
     Route: 048

REACTIONS (3)
  - Acute kidney injury [Recovered/Resolved]
  - Crystalluria [Recovered/Resolved]
  - Metabolic acidosis [Recovered/Resolved]
